FAERS Safety Report 6821246-9 (Version None)
Quarter: 2010Q3

REPORT INFORMATION
  Report Type: 
  Country: None (occurrence: None)
  Receive Date: 20100707
  Receipt Date: 20080602
  Transmission Date: 20110219
  Serious: No
  Sender: FDA-Public Use
  Company Number: US-PFIZER INC-2008032118

PATIENT
  Sex: Female
  Weight: 77.3 kg

DRUGS (4)
  1. ZOLOFT [Suspect]
     Indication: DEPRESSION
  2. BLACK COHOSH [Interacting]
     Dates: end: 20070101
  3. LIPITOR [Concomitant]
  4. CELEBREX [Concomitant]

REACTIONS (2)
  - ALOPECIA [None]
  - DRUG INTERACTION [None]
